FAERS Safety Report 8985198 (Version 3)
Quarter: 2013Q1

REPORT INFORMATION
  Report Type: Spontaneous
  Country: TR (occurrence: TR)
  Receive Date: 20121226
  Receipt Date: 20130128
  Transmission Date: 20140127
  Serious: Yes (Other)
  Sender: FDA-Public Use
  Company Number: TR-PFIZER INC-2012328569

PATIENT
  Age: 43 Year
  Sex: Male
  Weight: 88 kg

DRUGS (4)
  1. CHAMPIX [Suspect]
     Indication: SMOKING CESSATION THERAPY
     Dosage: 1 MG, 2X/DAY
     Route: 048
     Dates: start: 20120920, end: 20121220
  2. CHAMPIX [Suspect]
     Dosage: UNK
     Route: 048
  3. VERMIDON [Suspect]
     Indication: HEADACHE
     Dosage: UNK
     Route: 048
     Dates: start: 20121020
  4. THERAFLU [Concomitant]

REACTIONS (1)
  - Anaphylactic reaction [Recovered/Resolved]
